FAERS Safety Report 19289586 (Version 1)
Quarter: 2021Q2

REPORT INFORMATION
  Report Type: Spontaneous
  Country: US (occurrence: US)
  Receive Date: 20210521
  Receipt Date: 20210521
  Transmission Date: 20210717
  Serious: No
  Sender: FDA-Public Use
  Company Number: US-RADIUS HEALTH INC.-2020US003763

PATIENT
  Sex: Female

DRUGS (1)
  1. TYMLOS [Suspect]
     Active Substance: ABALOPARATIDE
     Indication: PRODUCT USED FOR UNKNOWN INDICATION
     Dosage: 80 MCG, DAILY
     Route: 065
     Dates: start: 20201108

REACTIONS (5)
  - Muscle spasms [Unknown]
  - Balance disorder [Unknown]
  - Limb discomfort [Unknown]
  - Muscular weakness [Unknown]
  - Vertigo [Unknown]
